FAERS Safety Report 9871103 (Version 1)
Quarter: 2014Q1

REPORT INFORMATION
  Report Type: Spontaneous
  Country: US (occurrence: US)
  Receive Date: 20140205
  Receipt Date: 20140205
  Transmission Date: 20141002
  Serious: No
  Sender: FDA-Public Use
  Company Number: US-GILEAD-2013-0074642

PATIENT
  Sex: Male

DRUGS (2)
  1. STRIBILD [Suspect]
     Indication: PRODUCT USED FOR UNKNOWN INDICATION
     Dosage: UNK
     Dates: start: 201303
  2. ATRIPLA [Suspect]
     Indication: PRODUCT USED FOR UNKNOWN INDICATION
     Dosage: UNK
     Dates: start: 200612

REACTIONS (6)
  - Atrioventricular block [Unknown]
  - Ventricular extrasystoles [Unknown]
  - Cardiac disorder [Unknown]
  - Dyspnoea [Unknown]
  - Dizziness [Unknown]
  - Dyspepsia [Unknown]
